FAERS Safety Report 5476031-X (Version None)
Quarter: 2007Q4

REPORT INFORMATION
  Report Type: 
  Country: None (occurrence: None)
  Receive Date: 20071003
  Receipt Date: 20070926
  Transmission Date: 20080405
  Serious: Yes (Hospitalization)
  Sender: FDA-Public Use
  Company Number: PHHO2007ES13164

PATIENT
  Age: 51 Year
  Sex: Male
  Weight: 77.6 kg

DRUGS (3)
  1. MYCOPHENOLIC ACID [Suspect]
     Indication: RENAL TRANSPLANT
     Dosage: 720 MG/DAILY
     Route: 048
     Dates: start: 20070724, end: 20070809
  2. VALCYTE [Concomitant]
  3. PREDNISONE [Concomitant]

REACTIONS (6)
  - BONE MARROW DISORDER [None]
  - HAEMOLYTIC ANAEMIA [None]
  - LEUKOPENIA [None]
  - MYELODYSPLASTIC SYNDROME [None]
  - PANCYTOPENIA [None]
  - PYREXIA [None]
